FAERS Safety Report 23135401 (Version 1)
Quarter: 2023Q4

REPORT INFORMATION
  Report Type: Spontaneous
  Country: FR (occurrence: FR)
  Receive Date: 20231101
  Receipt Date: 20231101
  Transmission Date: 20240110
  Serious: Yes (Death, Hospitalization)
  Sender: FDA-Public Use
  Company Number: None

PATIENT
  Age: 52 Year
  Sex: Female
  Weight: 53 kg

DRUGS (2)
  1. IDARUBICIN [Suspect]
     Active Substance: IDARUBICIN
     Indication: Acute monocytic leukaemia
     Dosage: 9 MG/M2, 1X/DAY
     Route: 042
     Dates: start: 20230908, end: 20230914
  2. CYTARABINE [Suspect]
     Active Substance: CYTARABINE
     Indication: Acute monocytic leukaemia
     Dosage: 200 MG/M2, 1X/DAY
     Route: 042
     Dates: start: 20230908, end: 20230914

REACTIONS (4)
  - Condition aggravated [Fatal]
  - Acute respiratory distress syndrome [Fatal]
  - Aplasia [Fatal]
  - Infection [Fatal]

NARRATIVE: CASE EVENT DATE: 20230909
